FAERS Safety Report 10054946 (Version 1)
Quarter: 2014Q2

REPORT INFORMATION
  Report Type: Spontaneous
  Country: TR (occurrence: TR)
  Receive Date: 20140402
  Receipt Date: 20140402
  Transmission Date: 20141212
  Serious: Yes (Other)
  Sender: FDA-Public Use
  Company Number: ALCN2014TR002070

PATIENT
  Age: 38 Year
  Sex: Male

DRUGS (1)
  1. ALCAINE [Suspect]
     Dosage: UNK
     Route: 047

REACTIONS (4)
  - Ulcerative keratitis [Recovered/Resolved with Sequelae]
  - Corneal thinning [Recovered/Resolved with Sequelae]
  - Corneal infiltrates [Recovered/Resolved with Sequelae]
  - Drug abuse [Unknown]
